FAERS Safety Report 8456042-2 (Version None)
Quarter: 2012Q2

REPORT INFORMATION
  Report Type: 
  Country: None (occurrence: None)
  Receive Date: 20120621
  Receipt Date: 20120614
  Transmission Date: 20120825
  Serious: No
  Sender: FDA-Public Use
  Company Number: US-B.I. PHARMACEUTICALS,INC./RIDGEFIELD-2012-BP-13730BP

PATIENT
  Sex: Male

DRUGS (5)
  1. XANAX [Concomitant]
     Indication: ANXIETY
     Route: 048
     Dates: start: 20070101
  2. SYNTHROID [Concomitant]
     Indication: THYROID DISORDER
     Dosage: 0.075 MG
     Route: 048
  3. ZANTAC [Suspect]
     Indication: DYSPEPSIA
     Dosage: 150 MG
     Route: 048
     Dates: start: 20120610, end: 20120611
  4. FISH OIL [Concomitant]
  5. VITAMIN TAB [Concomitant]

REACTIONS (2)
  - DIARRHOEA [None]
  - HAEMATOCHEZIA [None]
